FAERS Safety Report 25858557 (Version 1)
Quarter: 2025Q3

REPORT INFORMATION
  Report Type: Spontaneous
  Country: US (occurrence: US)
  Receive Date: 20250929
  Receipt Date: 20250929
  Transmission Date: 20251020
  Serious: No
  Sender: PADAGIS
  Company Number: US-PADAGIS-2025PAD01172

PATIENT

DRUGS (1)
  1. IMIQUIMOD [Suspect]
     Active Substance: IMIQUIMOD
     Indication: Skin cancer
     Route: 061
     Dates: start: 20250908, end: 20250912

REACTIONS (5)
  - Lip swelling [Recovering/Resolving]
  - Lip erythema [Recovering/Resolving]
  - Scab [Recovering/Resolving]
  - Pain [Recovering/Resolving]
  - Product use in unapproved indication [Unknown]

NARRATIVE: CASE EVENT DATE: 20250911
